FAERS Safety Report 5578393-1 (Version None)
Quarter: 2007Q4

REPORT INFORMATION
  Report Type: 
  Country: None (occurrence: None)
  Receive Date: 20071231
  Receipt Date: 20071220
  Transmission Date: 20080405
  Serious: Yes (Other)
  Sender: FDA-Public Use
  Company Number: US-PFIZER INC-2007108037

PATIENT
  Sex: Male
  Weight: 90.909 kg

DRUGS (14)
  1. CHANTIX [Suspect]
     Indication: SMOKING CESSATION THERAPY
  2. OXYCODONE HCL [Concomitant]
  3. MORPHINE [Concomitant]
  4. OXYCONTIN [Concomitant]
  5. VALIUM [Concomitant]
  6. LEVOTHYROXINE SODIUM [Concomitant]
  7. GLYBURIDE [Concomitant]
  8. METFORMIN HCL [Concomitant]
  9. GEMFIBROZIL [Concomitant]
  10. LISINOPRIL [Concomitant]
  11. HYDROCHLOROTHIAZIDE [Concomitant]
  12. CARTIA XT [Concomitant]
  13. CARVEDILOL [Concomitant]
  14. PRAVASTATIN [Concomitant]

REACTIONS (5)
  - BLOOD CALCIUM INCREASED [None]
  - CONVULSION [None]
  - SALIVARY HYPERSECRETION [None]
  - SLEEP DISORDER [None]
  - SWOLLEN TONGUE [None]
